FAERS Safety Report 11187121 (Version 1)
Quarter: 2015Q2

REPORT INFORMATION
  Report Type: Spontaneous
  Country: US (occurrence: US)
  Receive Date: 20150615
  Receipt Date: 20150615
  Transmission Date: 20150821
  Serious: No
  Sender: FDA-Public Use
  Company Number: US-JNJFOC-20150504078

PATIENT
  Age: 67 Year
  Sex: Male

DRUGS (15)
  1. ACETAMINOPHEN AND CODEINE [Suspect]
     Active Substance: ACETAMINOPHEN\CODEINE PHOSPHATE
     Indication: BACK PAIN
     Dosage: ACETAMINOPHEN WITH 30 MG CODEINE: USED TWO TABLETS EACH EVENING
     Route: 065
     Dates: start: 20111130
  2. HALOPERIDOL. [Concomitant]
     Active Substance: HALOPERIDOL
     Route: 065
     Dates: start: 20111129, end: 20111208
  3. INDAPAMIDE. [Concomitant]
     Active Substance: INDAPAMIDE
     Route: 065
  4. QUETIAPINE [Concomitant]
     Active Substance: QUETIAPINE
     Dosage: AT BEDTIME
     Route: 065
     Dates: start: 20111129, end: 20111208
  5. LORAZEPAM. [Concomitant]
     Active Substance: LORAZEPAM
     Dosage: AS NEEDED
     Route: 065
  6. ARIPIPRAZOLE. [Concomitant]
     Active Substance: ARIPIPRAZOLE
     Indication: PSYCHOTHERAPY
     Route: 065
  7. IRBESARTAN. [Concomitant]
     Active Substance: IRBESARTAN
     Route: 065
  8. NICOTINE. [Concomitant]
     Active Substance: NICOTINE
     Indication: DRUG WITHDRAWAL SYNDROME
     Route: 065
  9. VENLAFAXINE XR [Concomitant]
     Active Substance: VENLAFAXINE HYDROCHLORIDE
     Route: 065
     Dates: end: 20111207
  10. FLUTICASONE [Concomitant]
     Active Substance: FLUTICASONE\FLUTICASONE PROPIONATE
     Dosage: PUFF
     Route: 065
  11. SALBUTAMOL [Concomitant]
     Active Substance: ALBUTEROL
     Route: 065
  12. NIFEDIPINE XL [Concomitant]
     Active Substance: NIFEDIPINE
     Route: 065
  13. PROPRANOLOL [Concomitant]
     Active Substance: PROPRANOLOL\PROPRANOLOL HYDROCHLORIDE
     Route: 065
  14. LITHIUM CARBONATE. [Concomitant]
     Active Substance: LITHIUM CARBONATE
     Indication: PSYCHOTHERAPY
     Route: 065
     Dates: end: 20111207
  15. ZOPICLONE [Concomitant]
     Active Substance: ZOPICLONE
     Dosage: NIGHTLY
     Route: 065

REACTIONS (1)
  - Constipation [Unknown]
